FAERS Safety Report 10649080 (Version 9)
Quarter: 2015Q4

REPORT INFORMATION
  Report Type: Report from Study
  Country: US (occurrence: US)
  Receive Date: 20141212
  Receipt Date: 20151001
  Transmission Date: 20160304
  Serious: Yes (Hospitalization, Other)
  Sender: FDA-Public Use
  Company Number: US-SA-2014SA137265

PATIENT
  Age: 50 Year
  Sex: Female

DRUGS (7)
  1. NUVIGIL [Concomitant]
     Active Substance: ARMODAFINIL
  2. CELEXA [Concomitant]
     Active Substance: CITALOPRAM HYDROBROMIDE
  3. AUBAGIO [Suspect]
     Active Substance: TERIFLUNOMIDE
     Indication: MULTIPLE SCLEROSIS
     Route: 048
     Dates: start: 20140904, end: 20140929
  4. CYMBALTA [Concomitant]
     Active Substance: DULOXETINE HYDROCHLORIDE
  5. AUBAGIO [Suspect]
     Active Substance: TERIFLUNOMIDE
     Indication: MULTIPLE SCLEROSIS
     Route: 048
     Dates: start: 20141113, end: 20150922
  6. TECFIDERA [Concomitant]
     Active Substance: DIMETHYL FUMARATE
     Dates: start: 20130901, end: 20140901
  7. CORTICOSTEROID NOS [Concomitant]
     Active Substance: CORTICOSTEROID NOS

REACTIONS (26)
  - Contusion [Unknown]
  - Arthritis [Unknown]
  - Spondylitis [Unknown]
  - Dysphagia [Unknown]
  - Gastric disorder [Unknown]
  - Diarrhoea [Unknown]
  - Feeling abnormal [Unknown]
  - Blood pressure fluctuation [Recovering/Resolving]
  - Disability [Unknown]
  - Stress fracture [Unknown]
  - Intervertebral disc protrusion [Unknown]
  - Headache [Unknown]
  - Coordination abnormal [Unknown]
  - Nausea [Unknown]
  - Fatigue [Recovering/Resolving]
  - Hypoaesthesia [Unknown]
  - Pain in extremity [Unknown]
  - Eye disorder [Unknown]
  - Arrhythmia [Unknown]
  - Hypertension [Not Recovered/Not Resolved]
  - Condition aggravated [Unknown]
  - Mobility decreased [Unknown]
  - Hyperaesthesia [Unknown]
  - Burning sensation [Unknown]
  - Paraesthesia [Unknown]
  - Carpal tunnel syndrome [Unknown]

NARRATIVE: CASE EVENT DATE: 201501
